FAERS Safety Report 12060142 (Version 5)
Quarter: 2016Q3

REPORT INFORMATION
  Report Type: Report from Study
  Country: BE (occurrence: BE)
  Receive Date: 20160210
  Receipt Date: 20160902
  Transmission Date: 20161109
  Serious: Yes (Hospitalization, Other)
  Sender: FDA-Public Use
  Company Number: BE-BEH-2016058354

PATIENT
  Age: 66 Year
  Sex: Male

DRUGS (3)
  1. HIZENTRA [Suspect]
     Active Substance: HUMAN IMMUNOGLOBULIN G
     Indication: HYPOGAMMAGLOBULINAEMIA
     Dosage: 40 ML, TIW
     Route: 058
  2. HIZENTRA [Suspect]
     Active Substance: HUMAN IMMUNOGLOBULIN G
     Dosage: 3 X 8 G, QW
     Route: 058
  3. HIZENTRA [Suspect]
     Active Substance: HUMAN IMMUNOGLOBULIN G
     Dosage: UNK
     Route: 058
     Dates: start: 20160130

REACTIONS (6)
  - Gait disturbance [Not Recovered/Not Resolved]
  - Decubitus ulcer [Unknown]
  - Abasia [Unknown]
  - Bedridden [Unknown]
  - Diarrhoea [Unknown]
  - Phlebitis [Unknown]

NARRATIVE: CASE EVENT DATE: 20160125
